FAERS Safety Report 21933004 (Version 4)
Quarter: 2023Q1

REPORT INFORMATION
  Report Type: Report from Study
  Country: GB (occurrence: GB)
  Receive Date: 20230131
  Receipt Date: 20230313
  Transmission Date: 20230418
  Serious: Yes (Hospitalization)
  Sender: FDA-Public Use
  Company Number: GB-JNJFOC-20230149388

PATIENT
  Age: 63 Year
  Sex: Female
  Weight: 67 kg

DRUGS (16)
  1. DARATUMUMAB [Suspect]
     Active Substance: DARATUMUMAB
     Indication: Plasma cell myeloma
     Dosage: MOST RECENT DOSE 19-JAN-2023
     Route: 058
     Dates: start: 20211112
  2. SERTRALINE [Concomitant]
     Active Substance: SERTRALINE HYDROCHLORIDE
     Indication: Depression
     Route: 048
     Dates: start: 20040101
  3. LETROZOLE [Concomitant]
     Active Substance: LETROZOLE
     Indication: Invasive ductal breast carcinoma
     Route: 048
     Dates: start: 20190201
  4. GABAPENTIN [Concomitant]
     Active Substance: GABAPENTIN
     Indication: Neuralgia
     Route: 048
     Dates: start: 20191001
  5. GABAPENTIN [Concomitant]
     Active Substance: GABAPENTIN
     Indication: Peripheral sensory neuropathy
     Route: 048
     Dates: start: 20220516
  6. CLODRONIC ACID [Concomitant]
     Active Substance: CLODRONIC ACID
     Indication: Prophylaxis
     Route: 048
     Dates: start: 20220516
  7. GRANULOCYTE COLONY STIMULATING FACTOR;MITUMPROTIMUT-T [Concomitant]
     Indication: Neutrophil count decreased
     Dosage: 30000000
     Route: 058
     Dates: start: 20221019
  8. GRANULOCYTE COLONY STIMULATING FACTOR;MITUMPROTIMUT-T [Concomitant]
     Indication: Prophylaxis
     Route: 058
     Dates: start: 20221122
  9. ACYCLOVIR [Concomitant]
     Active Substance: ACYCLOVIR
     Indication: Prophylaxis
     Route: 048
  10. APIXABAN [Concomitant]
     Active Substance: APIXABAN
     Indication: Prophylaxis
     Route: 048
     Dates: start: 20221018, end: 20230121
  11. APIXABAN [Concomitant]
     Active Substance: APIXABAN
     Route: 048
     Dates: start: 20230125
  12. POLYETHYLENE GLYCOLS [Concomitant]
     Active Substance: POLYETHYLENE GLYCOLS
     Indication: Constipation
     Route: 048
     Dates: start: 20221125
  13. AMLODIPINE [Concomitant]
     Active Substance: AMLODIPINE BESYLATE
     Indication: Prophylaxis
     Route: 048
     Dates: start: 20230109
  14. BUTYLSCOPOLAMINE BROMIDE [Concomitant]
     Active Substance: BUTYLSCOPOLAMINE BROMIDE
     Indication: Prophylaxis
     Route: 048
     Dates: start: 20220825
  15. OMEPRAZOLE [Concomitant]
     Active Substance: OMEPRAZOLE
     Indication: Prophylaxis
     Route: 048
     Dates: start: 20221027
  16. OMEPRAZOLE [Concomitant]
     Active Substance: OMEPRAZOLE
     Route: 048
     Dates: start: 20221027

REACTIONS (1)
  - Epiglottitis [Recovered/Resolved with Sequelae]

NARRATIVE: CASE EVENT DATE: 20230122
